FAERS Safety Report 23788676 (Version 3)
Quarter: 2024Q4

REPORT INFORMATION
  Report Type: Report from Study
  Country: NL (occurrence: NL)
  Receive Date: 20240426
  Receipt Date: 20241219
  Transmission Date: 20250115
  Serious: Yes (Other)
  Sender: BAUSCH AND LOMB
  Company Number: NL-LEO Pharma-368530

PATIENT
  Age: 61 Year
  Sex: Male

DRUGS (3)
  1. BRODALUMAB [Suspect]
     Active Substance: BRODALUMAB
     Indication: Psoriasis
     Dosage: TEMPORARY STOPPED THE TREATMENT
     Route: 065
     Dates: start: 20240213, end: 20240223
  2. BRODALUMAB [Suspect]
     Active Substance: BRODALUMAB
     Route: 065
     Dates: start: 20240409
  3. ENSTILAR [Concomitant]
     Active Substance: BETAMETHASONE DIPROPIONATE\CALCIPOTRIENE HYDRATE
     Indication: Psoriasis
     Dosage: DAY DOSES: 3/4X PER WEEK
     Route: 003

REACTIONS (2)
  - Iridocyclitis [Recovered/Resolved]
  - Iridocyclitis [Recovered/Resolved]

NARRATIVE: CASE EVENT DATE: 20240218
